FAERS Safety Report 9395270 (Version 2)
Quarter: 2013Q3

REPORT INFORMATION
  Report Type: Spontaneous
  Country: US (occurrence: US)
  Receive Date: 20130711
  Receipt Date: 20130815
  Transmission Date: 20140515
  Serious: Yes (Other)
  Sender: FDA-Public Use
  Company Number: US-ASTELLAS-2013US007235

PATIENT
  Sex: Male

DRUGS (2)
  1. MYRBETRIQ [Suspect]
     Indication: URINARY INCONTINENCE
     Dosage: 25 MG, UID/QD
     Route: 048
  2. MYRBETRIQ [Suspect]
     Dosage: 25 MG, BID
     Route: 048

REACTIONS (5)
  - Drug ineffective [Unknown]
  - Inappropriate schedule of drug administration [Unknown]
  - Cardiac operation [Unknown]
  - Urinary incontinence [Unknown]
  - Pollakiuria [Unknown]
